FAERS Safety Report 6333187-4 (Version None)
Quarter: 2009Q3

REPORT INFORMATION
  Report Type: 
  Country: None (occurrence: None)
  Receive Date: 20090828
  Receipt Date: 20090819
  Transmission Date: 20100115
  Serious: Yes (Hospitalization)
  Sender: FDA-Public Use
  Company Number: JP-ROCHE-643567

PATIENT
  Sex: Female

DRUGS (13)
  1. CAPECITABINE [Suspect]
     Indication: COLON CANCER
     Dosage: STRENGTH:300
     Route: 048
     Dates: start: 20081219, end: 20090101
  2. CAPECITABINE [Suspect]
     Route: 048
     Dates: start: 20090109, end: 20090122
  3. CAPECITABINE [Suspect]
     Dosage: DOSE DECREASED.
     Route: 048
     Dates: start: 20090130, end: 20090212
  4. CAPECITABINE [Suspect]
     Route: 048
     Dates: start: 20090227, end: 20090312
  5. CAPECITABINE [Suspect]
     Route: 048
     Dates: start: 20090320, end: 20090402
  6. CAPECITABINE [Suspect]
     Dosage: DOSE DECREASED.
     Route: 048
     Dates: start: 20090410, end: 20090423
  7. CAPECITABINE [Suspect]
     Route: 048
     Dates: start: 20090508, end: 20090521
  8. CAPECITABINE [Suspect]
     Route: 048
     Dates: start: 20090529, end: 20090611
  9. HIRUDOID [Concomitant]
     Dosage: DOSAGE ADJUSTED. DOSE FORM: EXTERNAL PREPARATION
     Route: 061
     Dates: start: 20081219, end: 20090607
  10. PYDOXAL [Concomitant]
     Route: 048
     Dates: start: 20081219, end: 20090617
  11. HACHIAZULE [Concomitant]
     Dosage: ROUTE: OROPHARINGEAL. FORM: GARGLE
     Route: 050
     Dates: start: 20090609, end: 20090617
  12. ZOFRAN [Concomitant]
     Dosage: FORM ; ORAL FORMULATION
     Route: 048
     Dates: start: 20090320, end: 20090330
  13. DECADRON [Concomitant]
     Route: 048
     Dates: start: 20090320, end: 20090430

REACTIONS (7)
  - DECREASED APPETITE [None]
  - DIARRHOEA [None]
  - HEPATIC FUNCTION ABNORMAL [None]
  - HYPERAMYLASAEMIA [None]
  - NAUSEA [None]
  - PALMAR-PLANTAR ERYTHRODYSAESTHESIA SYNDROME [None]
  - PYREXIA [None]
